FAERS Safety Report 5888230-3 (Version None)
Quarter: 2008Q3

REPORT INFORMATION
  Report Type: 
  Country: None (occurrence: None)
  Receive Date: 20080918
  Receipt Date: 20080909
  Transmission Date: 20090109
  Serious: Yes (Disabling)
  Sender: FDA-Public Use
  Company Number: US-JNJFOC-20080806165

PATIENT
  Sex: Female

DRUGS (2)
  1. DOXIL [Suspect]
     Dosage: CYCLE 6
     Route: 042
  2. DOXIL [Suspect]
     Indication: OVARIAN CANCER
     Dosage: CYCLES 1-5
     Route: 042

REACTIONS (2)
  - JOINT SWELLING [None]
  - PAIN IN EXTREMITY [None]
